FAERS Safety Report 5165108-4 (Version None)
Quarter: 2006Q4

REPORT INFORMATION
  Report Type: 
  Country: None (occurrence: None)
  Receive Date: 20061127
  Receipt Date: 20061024
  Transmission Date: 20070319
  Serious: Yes (Death)
  Sender: FDA-Public Use
  Company Number: AND_AAPCC_2006_0323

PATIENT
  Age: 70 Year

DRUGS (3)
  1. MIRTAZAPINE [Suspect]
     Dosage: DF, UNK 047
  2. ACETAMINOPHEN [Suspect]
     Dosage: DF, UNK 047
  3. TRAZODONE HCL [Suspect]
     Dosage: DF, UNK 047

REACTIONS (3)
  - CARDIAC ARREST [None]
  - COMPLETED SUICIDE [None]
  - RESPIRATORY ARREST [None]
